FAERS Safety Report 6823959-1 (Version None)
Quarter: 2010Q3

REPORT INFORMATION
  Report Type: 
  Country: None (occurrence: None)
  Receive Date: 20100708
  Receipt Date: 20060928
  Transmission Date: 20110219
  Serious: No
  Sender: FDA-Public Use
  Company Number: US-PFIZER INC-2006118626

PATIENT
  Sex: Male
  Weight: 107.5 kg

DRUGS (10)
  1. CHANTIX [Suspect]
     Indication: SMOKING CESSATION THERAPY
     Dates: start: 20060911
  2. ABILIFY [Concomitant]
  3. ADVAIR DISKUS 100/50 [Concomitant]
     Dosage: 500/50MG PER DOSE
     Route: 055
  4. ALBUTEROL [Concomitant]
     Dosage: NA EVERY 6 HOURSAS NEEDED
     Route: 055
  5. ATIVAN [Concomitant]
  6. LAMICTAL [Concomitant]
  7. LITHIUM CARBONATE [Concomitant]
  8. PROTONIX [Concomitant]
  9. RISPERDAL [Concomitant]
  10. WELLBUTRIN [Concomitant]

REACTIONS (3)
  - ANXIETY [None]
  - DISTURBANCE IN ATTENTION [None]
  - INSOMNIA [None]
